FAERS Safety Report 22349415 (Version 18)
Quarter: 2025Q3

REPORT INFORMATION
  Report Type: Report from Study
  Country: US (occurrence: US)
  Receive Date: 20230522
  Receipt Date: 20250826
  Transmission Date: 20251021
  Serious: Yes (Other)
  Sender: ASTELLAS
  Company Number: US-ASTELLAS-2022US021129

PATIENT
  Age: 85 Year
  Sex: Male

DRUGS (5)
  1. ENZALUTAMIDE [Suspect]
     Active Substance: ENZALUTAMIDE
     Indication: Prostate cancer
     Route: 048
     Dates: start: 20220215
  2. ENZALUTAMIDE [Suspect]
     Active Substance: ENZALUTAMIDE
     Indication: Prostate cancer
     Dosage: 160 MG, ONCE DAILY (2 X 80MG TABLETS)
     Route: 048
     Dates: start: 20220315, end: 20221124
  3. ENZALUTAMIDE [Suspect]
     Active Substance: ENZALUTAMIDE
     Indication: Diffuse large B-cell lymphoma
     Dosage: 80 MG, ONCE DAILY (1 X 80MG TABLETS)
     Route: 048
     Dates: start: 20221125
  4. ENZALUTAMIDE [Suspect]
     Active Substance: ENZALUTAMIDE
     Route: 048
     Dates: start: 20250315
  5. IRON [Concomitant]
     Active Substance: IRON
     Indication: Anaemia
     Route: 065

REACTIONS (19)
  - Blood iron decreased [Not Recovered/Not Resolved]
  - Seizure like phenomena [Not Recovered/Not Resolved]
  - Skin cancer [Unknown]
  - Hallucination, visual [Not Recovered/Not Resolved]
  - Balance disorder [Recovered/Resolved]
  - Metamorphopsia [Not Recovered/Not Resolved]
  - Dyschromatopsia [Not Recovered/Not Resolved]
  - Dyskinesia [Not Recovered/Not Resolved]
  - Muscle spasms [Not Recovered/Not Resolved]
  - Performance status decreased [Unknown]
  - Asthenia [Recovering/Resolving]
  - Fatigue [Recovering/Resolving]
  - Blood pressure increased [Unknown]
  - Nausea [Unknown]
  - Vertigo [Recovered/Resolved]
  - Somnolence [Not Recovered/Not Resolved]
  - Balance disorder [Recovered/Resolved]
  - Vision blurred [Not Recovered/Not Resolved]
  - Off label use [Unknown]

NARRATIVE: CASE EVENT DATE: 20220401
